FAERS Safety Report 15305528 (Version 2)
Quarter: 2018Q3

REPORT INFORMATION
  Report Type: Spontaneous
  Country: US (occurrence: US)
  Receive Date: 20180822
  Receipt Date: 20180910
  Transmission Date: 20181010
  Serious: Yes (Other)
  Sender: FDA-Public Use
  Company Number: US-AUROBINDO-AUR-APL-2018-042069

PATIENT
  Age: 14 Year
  Sex: Female

DRUGS (1)
  1. SERTRALINE [Suspect]
     Active Substance: SERTRALINE HYDROCHLORIDE
     Indication: SELECTIVE EATING DISORDER
     Dosage: 50 MILLIGRAM, DAILY FOR ABOUT ONE WEEK
     Route: 065

REACTIONS (3)
  - Suicidal ideation [Recovered/Resolved]
  - Activation syndrome [Recovered/Resolved]
  - Agitation [Recovered/Resolved]
